FAERS Safety Report 6189465-5 (Version None)
Quarter: 2009Q2

REPORT INFORMATION
  Report Type: 
  Country: None (occurrence: None)
  Receive Date: 20090514
  Receipt Date: 20090507
  Transmission Date: 20091009
  Serious: Yes (Death)
  Sender: FDA-Public Use
  Company Number: PH-PFIZER INC-2009212307

PATIENT

DRUGS (1)
  1. NORVASC [Suspect]

REACTIONS (1)
  - DEATH [None]
